FAERS Safety Report 6420308-8 (Version None)
Quarter: 2009Q4

REPORT INFORMATION
  Report Type: 
  Country: None (occurrence: None)
  Receive Date: 20091029
  Receipt Date: 20091019
  Transmission Date: 20100525
  Serious: Yes (Hospitalization)
  Sender: FDA-Public Use
  Company Number: DE-ABBOTT-09P-062-0604427-00

PATIENT
  Sex: Male

DRUGS (3)
  1. ENANTONE 3.75 MG [Suspect]
     Indication: PRECOCIOUS PUBERTY
     Route: 058
     Dates: start: 20080401, end: 20090901
  2. ENANTONE 3.75 MG [Suspect]
     Indication: GROWTH RETARDATION
  3. HAMTROPE [Concomitant]
     Indication: DRUG USE FOR UNKNOWN INDICATION
     Route: 058
     Dates: start: 20040401

REACTIONS (1)
  - INJECTION SITE ABSCESS [None]
